FAERS Safety Report 6772492-4 (Version None)
Quarter: 2010Q2

REPORT INFORMATION
  Report Type: 
  Country: None (occurrence: None)
  Receive Date: 20100616
  Receipt Date: 20100316
  Transmission Date: 20101027
  Serious: No
  Sender: FDA-Public Use
  Company Number: US-ASTRAZENECA-2010SE11709

PATIENT
  Sex: Female
  Weight: 40.8 kg

DRUGS (2)
  1. PULMICORT FLEXHALER [Suspect]
     Dosage: 90 UG, TWO PUFFS TWO TIMES A DAY
     Route: 055
     Dates: start: 20100301, end: 20100301
  2. SPIRIVA [Concomitant]

REACTIONS (2)
  - DYSPNOEA [None]
  - OXYGEN SATURATION DECREASED [None]
